FAERS Safety Report 9857613 (Version 1)
Quarter: 2014Q1

REPORT INFORMATION
  Report Type: Spontaneous
  Country: US (occurrence: US)
  Receive Date: 20140131
  Receipt Date: 20140131
  Transmission Date: 20141002
  Serious: Yes (Other)
  Sender: FDA-Public Use
  Company Number: US-ASTRAZENECA-2014SE05511

PATIENT
  Age: 70 Year
  Sex: Male
  Weight: 104.3 kg

DRUGS (22)
  1. LISINOPRIL [Suspect]
     Indication: CEREBROVASCULAR ACCIDENT
     Route: 048
     Dates: start: 2003
  2. TOPROL XL [Suspect]
     Indication: DIABETES MELLITUS
     Dosage: GENERIC
     Route: 048
     Dates: start: 2003
  3. TOPROL XL [Suspect]
     Indication: CEREBROVASCULAR ACCIDENT
     Dosage: GENERIC
     Route: 048
     Dates: start: 2003
  4. TOPROL XL [Suspect]
     Indication: DIABETES MELLITUS
     Route: 048
     Dates: start: 2010, end: 201312
  5. TOPROL XL [Suspect]
     Indication: CEREBROVASCULAR ACCIDENT
     Route: 048
     Dates: start: 2010, end: 201312
  6. TOPROL XL [Suspect]
     Indication: DIABETES MELLITUS
     Route: 048
     Dates: start: 201312
  7. TOPROL XL [Suspect]
     Indication: CEREBROVASCULAR ACCIDENT
     Route: 048
     Dates: start: 201312
  8. TYLENOL [Concomitant]
     Indication: PAIN IN EXTREMITY
     Dates: start: 201306
  9. ASPIRIN [Concomitant]
     Indication: CARDIAC DISORDER
  10. ASPIRIN [Concomitant]
     Indication: CARDIAC DISORDER
     Dates: start: 201306
  11. ZORALTOL [Concomitant]
     Indication: THROMBOSIS
     Dates: start: 201308
  12. FENOFIBRATE [Concomitant]
     Indication: BLOOD PRESSURE ABNORMAL
  13. ACTOSE [Concomitant]
     Indication: DIABETES MELLITUS
  14. PITAVASTATIN [Concomitant]
     Indication: BLOOD PRESSURE ABNORMAL
     Dates: start: 201104
  15. PITAVASTATIN [Concomitant]
     Indication: BLOOD PRESSURE ABNORMAL
     Dates: start: 201401
  16. B12 [Concomitant]
     Indication: GENERAL PHYSICAL CONDITION ABNORMAL
  17. FOLIC ACID [Concomitant]
     Indication: GENERAL PHYSICAL CONDITION ABNORMAL
  18. MULTIVITAMIN [Concomitant]
     Indication: GENERAL PHYSICAL CONDITION ABNORMAL
  19. OMEGA-3 [Concomitant]
     Indication: GENERAL PHYSICAL CONDITION ABNORMAL
     Dates: start: 201104
  20. CO Q-10 [Concomitant]
     Indication: GENERAL PHYSICAL CONDITION ABNORMAL
  21. D3 [Concomitant]
     Indication: GENERAL PHYSICAL CONDITION ABNORMAL
     Dates: start: 201104
  22. VERAPAMIL [Concomitant]
     Indication: BLOOD PRESSURE ABNORMAL
     Dates: start: 2013

REACTIONS (4)
  - Neuropathy peripheral [Unknown]
  - Blood glucose abnormal [Not Recovered/Not Resolved]
  - Rash [Unknown]
  - Off label use [Unknown]
